FAERS Safety Report 5483385-7 (Version None)
Quarter: 2007Q4

REPORT INFORMATION
  Report Type: 
  Country: None (occurrence: None)
  Receive Date: 20071009
  Receipt Date: 20071009
  Transmission Date: 20080405
  Serious: Yes (Other)
  Sender: FDA-Public Use
  Company Number: None

PATIENT
  Age: 21 Year
  Sex: Female
  Weight: 90.2658 kg

DRUGS (2)
  1. RISPERDAL [Suspect]
     Indication: PSYCHOTIC DISORDER
     Dosage: 2 MG -} 6MG 1/DAY ORAL
     Route: 048
     Dates: start: 20070326, end: 20070527
  2. METAFORMINE [Suspect]
     Indication: DIABETES MELLITUS
     Dosage: 1000MG-}2,000MG 1,000/2XDAY ORAL
     Route: 048
     Dates: start: 20070326, end: 20070527

REACTIONS (4)
  - BLOOD GLUCOSE INCREASED [None]
  - BRADYPHRENIA [None]
  - DIARRHOEA [None]
  - GAIT DISTURBANCE [None]
